FAERS Safety Report 5664404-1 (Version None)
Quarter: 2008Q1

REPORT INFORMATION
  Report Type: 
  Country: None (occurrence: None)
  Receive Date: 20080311
  Receipt Date: 20080311
  Transmission Date: 20080703
  Serious: Yes (Disabling)
  Sender: FDA-Public Use
  Company Number: None

PATIENT
  Age: 61 Year
  Sex: Female
  Weight: 83.4619 kg

DRUGS (2)
  1. VANCOMYCIN [Suspect]
     Indication: EVIDENCE BASED TREATMENT
     Dosage: 1GM Q12H IV X1 DOSE
     Route: 042
     Dates: start: 20080211, end: 20080211
  2. VANCOMYCIN [Suspect]
     Indication: PNEUMONIA
     Dosage: 1GM Q12H IV X1 DOSE
     Route: 042
     Dates: start: 20080211, end: 20080211

REACTIONS (2)
  - ANAPHYLACTIC SHOCK [None]
  - VENTRICULAR TACHYCARDIA [None]
